FAERS Safety Report 12467425 (Version 1)
Quarter: 2016Q2

REPORT INFORMATION
  Report Type: Spontaneous
  Country: US (occurrence: US)
  Receive Date: 20160615
  Receipt Date: 20160615
  Transmission Date: 20160815
  Serious: No
  Sender: FDA-Public Use
  Company Number: US-TEVA-643112USA

PATIENT
  Sex: Female
  Weight: 88.53 kg

DRUGS (2)
  1. CIPROFLOXACIN. [Suspect]
     Active Substance: CIPROFLOXACIN
     Indication: MYOSITIS
     Route: 065
     Dates: start: 20160302, end: 20160307
  2. CIPROFLOXACIN. [Suspect]
     Active Substance: CIPROFLOXACIN
     Indication: GASTRITIS

REACTIONS (3)
  - Myalgia [Unknown]
  - Nausea [Unknown]
  - Malaise [Unknown]
